FAERS Safety Report 8600813-6 (Version None)
Quarter: 2012Q3

REPORT INFORMATION
  Report Type: 
  Country: None (occurrence: None)
  Receive Date: 20120817
  Receipt Date: 20120808
  Transmission Date: 20120928
  Serious: No
  Sender: FDA-Public Use
  Company Number: US-BAYER-2012-081926

PATIENT
  Sex: Female

DRUGS (5)
  1. XANAX [Concomitant]
  2. TRAMADOL HCL [Concomitant]
  3. MELATONIN [Concomitant]
     Dosage: 1 MG, UNK
  4. ESTRACE [Concomitant]
  5. ALEVE (CAPLET) [Suspect]
     Indication: PAIN
     Route: 048

REACTIONS (1)
  - PAIN [None]
